FAERS Safety Report 16982330 (Version 3)
Quarter: 2019Q4

REPORT INFORMATION
  Report Type: Report from Study
  Country: GB (occurrence: GB)
  Receive Date: 20191101
  Receipt Date: 20191227
  Transmission Date: 20200122
  Serious: Yes (Hospitalization)
  Sender: FDA-Public Use
  Company Number: GB-ROCHE-2451808

PATIENT
  Sex: Female

DRUGS (4)
  1. CO-DYDRAMOL [Concomitant]
     Active Substance: ACETAMINOPHEN\DIHYDROCODEINE
  2. ROACTEMRA [Suspect]
     Active Substance: TOCILIZUMAB
     Indication: RHEUMATOID ARTHRITIS
     Dosage: ON 02/OCT/2019, TOOK THE LAST DOSE OF TOCILIZUMAB INJECTION.
     Route: 058
     Dates: start: 2019
  3. LEFLUNOMIDE. [Concomitant]
     Active Substance: LEFLUNOMIDE
  4. ETODOLAC. [Concomitant]
     Active Substance: ETODOLAC

REACTIONS (8)
  - Pneumonia [Unknown]
  - Condition aggravated [Unknown]
  - Dysgeusia [Unknown]
  - Immunosuppression [Unknown]
  - Lower respiratory tract infection [Unknown]
  - Cough [Unknown]
  - Rheumatoid arthritis [Unknown]
  - Fungal infection [Unknown]
